FAERS Safety Report 6177690-9 (Version None)
Quarter: 2009Q2

REPORT INFORMATION
  Report Type: 
  Country: None (occurrence: None)
  Receive Date: 20090504
  Receipt Date: 20081217
  Transmission Date: 20091009
  Serious: No
  Sender: FDA-Public Use
  Company Number: US-ALEXION-A200800424

PATIENT
  Sex: Male

DRUGS (5)
  1. SOLIRIS [Suspect]
     Indication: PAROXYSMAL NOCTURNAL HAEMOGLOBINURIA
     Dosage: 600 MG, UNK
     Route: 042
     Dates: start: 20080916
  2. SOLIRIS [Suspect]
     Dosage: 900 MG, UNK
     Route: 042
     Dates: start: 20081014
  3. DIOVAN                             /01319601/ [Concomitant]
  4. ASPIRIN [Concomitant]
  5. INSULIN [Concomitant]

REACTIONS (4)
  - EYE DISORDER [None]
  - EYE IRRITATION [None]
  - EYE PAIN [None]
  - LACRIMATION INCREASED [None]
